FAERS Safety Report 24760523 (Version 2)
Quarter: 2025Q1

REPORT INFORMATION
  Report Type: Spontaneous
  Country: US (occurrence: US)
  Receive Date: 20241220
  Receipt Date: 20250226
  Transmission Date: 20250409
  Serious: No
  Sender: KYOWA
  Company Number: US-KYOWAKIRIN-2024KK028572

PATIENT

DRUGS (3)
  1. CRYSVITA [Suspect]
     Active Substance: BUROSUMAB-TWZA
     Indication: Product used for unknown indication
     Route: 065
     Dates: start: 202305
  2. CRYSVITA [Suspect]
     Active Substance: BUROSUMAB-TWZA
     Route: 065
     Dates: start: 2024
  3. CRYSVITA [Suspect]
     Active Substance: BUROSUMAB-TWZA
     Route: 065
     Dates: start: 20250129

REACTIONS (1)
  - Blood phosphorus decreased [Unknown]
